FAERS Safety Report 7527664-8 (Version None)
Quarter: 2011Q2

REPORT INFORMATION
  Report Type: 
  Country: None (occurrence: None)
  Receive Date: 20110527
  Receipt Date: 20110513
  Transmission Date: 20111010
  Serious: Yes (Hospitalization, Other)
  Sender: FDA-Public Use
  Company Number: AUR-APL-2011-01679

PATIENT
  Age: 93 Year
  Sex: Female
  Weight: 50 kg

DRUGS (14)
  1. CHLORHEXIDINE (CHLORTHEXIDINE GLUCONATE COLUTION) [Concomitant]
  2. NEFOPAM (NEFOPAM HYDROCHLORIDE) [Concomitant]
  3. OMEPRAZOLE [Concomitant]
  4. SIMVASTATIN [Concomitant]
  5. AMITRIPTYLINE HYDROCHLORIDE [Concomitant]
  6. NIFEDIPINE [Concomitant]
  7. CALCIUM CARBONATE/COLECALIFEROL )ADCAL-D3) [Concomitant]
  8. ALENDRONATE SODIUM [Concomitant]
  9. MICONAZOLE ORALLY [Concomitant]
  10. CIPROFLOXACIN HCL [Suspect]
     Indication: URINARY TRACT INFECTION
     Dosage: 250MG-BID-ORAL
     Route: 048
     Dates: start: 20110504, end: 20110505
  11. TRIMETHOPRIM [Suspect]
     Indication: URINARY TRACT INFECTION
     Dosage: 200MG-BID-ORAL
     Route: 048
     Dates: start: 20110428, end: 20110430
  12. CITALOPRAM [Concomitant]
  13. NYSTAIN ORALLY [Concomitant]
  14. ACETAMINOPHEN [Concomitant]

REACTIONS (4)
  - GENITAL ULCERATION [None]
  - MOUTH ULCERATION [None]
  - STEVENS-JOHNSON SYNDROME [None]
  - LIP SWELLING [None]
